FAERS Safety Report 8551554-5 (Version None)
Quarter: 2012Q3

REPORT INFORMATION
  Report Type: 
  Country: None (occurrence: None)
  Receive Date: 20120730
  Receipt Date: 20120720
  Transmission Date: 20120928
  Serious: No
  Sender: FDA-Public Use
  Company Number: US-BAYER-2012-073890

PATIENT
  Age: 65 Year
  Sex: Female

DRUGS (4)
  1. ZIAC [Concomitant]
  2. PREVACID [Concomitant]
  3. SYNTHROID [Concomitant]
     Indication: THYROID DISORDER
  4. CLIMARA [Suspect]
     Indication: MENOPAUSE
     Dosage: 0.05 MG, CONT
     Route: 062
     Dates: start: 20120527, end: 20120706

REACTIONS (3)
  - PRURITUS [None]
  - ERYTHEMA [None]
  - APPLICATION SITE RASH [None]
